FAERS Safety Report 4970088-8 (Version None)
Quarter: 2006Q2

REPORT INFORMATION
  Report Type: 
  Country: None (occurrence: None)
  Receive Date: 20060406
  Receipt Date: 20060321
  Transmission Date: 20061013
  Serious: No
  Sender: FDA-Public Use
  Company Number: US_0511123434

PATIENT
  Age: 55 Year
  Sex: Female
  Weight: 78.5 kg

DRUGS (15)
  1. ZYPREXA [Suspect]
     Indication: MENTAL DISORDER
     Dosage: SEE IMAGE
     Route: 048
     Dates: start: 19990811, end: 20010424
  2. ZYPREXA [Suspect]
     Indication: MENTAL DISORDER
     Dosage: SEE IMAGE
     Route: 048
     Dates: start: 20010101, end: 20010507
  3. ZYPREXA [Suspect]
     Indication: MENTAL DISORDER
     Dosage: SEE IMAGE
     Route: 048
     Dates: start: 20000208, end: 20031124
  4. PROZAC [Suspect]
     Indication: DEPRESSION
  5. EVISTA [Suspect]
     Indication: OSTEOPOROSIS
     Dosage: 60 MG, DAILY (1/D)
     Dates: start: 19990106
  6. PREMARIN [Concomitant]
  7. PROGESTERONE [Concomitant]
  8. TEMAZEPAM [Concomitant]
  9. ALPHAGAN [Concomitant]
  10. CELEXA [Concomitant]
  11. AMBIEN [Concomitant]
  12. VALIUM [Concomitant]
  13. LASIX (FUROSEMIDE, FUROSEMIDE SODIUM) [Concomitant]
  14. DICLOFENAC (DICLOFENAC) [Concomitant]
  15. SERZONE [Concomitant]

REACTIONS (13)
  - ANXIETY [None]
  - BLOOD CHOLESTEROL INCREASED [None]
  - BREAST PAIN [None]
  - BREAST TENDERNESS [None]
  - DIABETES MELLITUS [None]
  - DIABETES MELLITUS NON-INSULIN-DEPENDENT [None]
  - DISEASE RECURRENCE [None]
  - FEAR [None]
  - INCREASED APPETITE [None]
  - LEUKOPENIA [None]
  - LIBIDO DECREASED [None]
  - MAJOR DEPRESSION [None]
  - WEIGHT INCREASED [None]
